FAERS Safety Report 5746821-4 (Version None)
Quarter: 2008Q2

REPORT INFORMATION
  Report Type: 
  Country: None (occurrence: None)
  Receive Date: 20080520
  Receipt Date: 20080520
  Transmission Date: 20081010
  Serious: Yes (Other)
  Sender: FDA-Public Use
  Company Number: None

PATIENT
  Age: 64 Year
  Sex: Male
  Weight: 91.6266 kg

DRUGS (1)
  1. CHANTIX [Suspect]
     Indication: SMOKING CESSATION THERAPY
     Dosage: ONE TABLET TWICE DAILY PO
     Route: 048
     Dates: start: 20080324, end: 20080512

REACTIONS (5)
  - ARRHYTHMIA [None]
  - ARTHRALGIA [None]
  - DEPRESSION [None]
  - MENTAL DISORDER [None]
  - MYALGIA [None]
